FAERS Safety Report 7035627-4 (Version None)
Quarter: 2010Q4

REPORT INFORMATION
  Report Type: 
  Country: None (occurrence: None)
  Receive Date: 20101008
  Receipt Date: 20100930
  Transmission Date: 20110411
  Serious: Yes (Hospitalization)
  Sender: FDA-Public Use
  Company Number: CH-JNJFOC-20100908774

PATIENT
  Age: 88 Year
  Sex: Male
  Weight: 60.9 kg

DRUGS (13)
  1. HALDOL [Suspect]
     Indication: PRODUCT USED FOR UNKNOWN INDICATION
     Route: 058
  2. SEROQUEL [Suspect]
     Indication: PRODUCT USED FOR UNKNOWN INDICATION
     Route: 048
  3. MEMANTINE HCL [Suspect]
     Indication: PRODUCT USED FOR UNKNOWN INDICATION
     Route: 048
  4. MOTILIUM [Concomitant]
     Route: 065
  5. ZOLOFT [Concomitant]
     Route: 048
  6. DISTRANEURINE [Concomitant]
     Route: 048
  7. SINEMET [Concomitant]
     Route: 048
  8. SINEMET [Concomitant]
     Route: 048
  9. TASMAR [Concomitant]
     Route: 048
  10. PRADIF [Concomitant]
     Route: 048
  11. GABAPENTINE [Concomitant]
     Route: 048
  12. EXELON [Concomitant]
     Route: 061
  13. LAXOBERON [Concomitant]
     Route: 065

REACTIONS (6)
  - AGGRESSION [None]
  - ALTERED STATE OF CONSCIOUSNESS [None]
  - ATROPHY [None]
  - LEUKOENCEPHALOPATHY [None]
  - PSYCHOMOTOR HYPERACTIVITY [None]
  - SOMNOLENCE [None]
